FAERS Safety Report 8955079 (Version 16)
Quarter: 2015Q4

REPORT INFORMATION
  Report Type: Report from Study
  Country: CA (occurrence: CA)
  Receive Date: 20121207
  Receipt Date: 20151113
  Transmission Date: 20160305
  Serious: Yes (Other)
  Sender: FDA-Public Use
  Company Number: CA-ROCHE-1129005

PATIENT
  Age: 57 Year
  Sex: Female
  Weight: 85 kg

DRUGS (8)
  1. ACTEMRA [Suspect]
     Active Substance: TOCILIZUMAB
     Route: 042
     Dates: start: 20120912
  2. METHOTREXATE [Concomitant]
     Active Substance: METHOTREXATE
  3. ACTEMRA [Suspect]
     Active Substance: TOCILIZUMAB
     Route: 042
     Dates: start: 20150107
  4. ACTEMRA [Suspect]
     Active Substance: TOCILIZUMAB
     Indication: RHEUMATOID ARTHRITIS
     Route: 042
     Dates: start: 2008
  5. PNEUMOVAX 23 [Suspect]
     Active Substance: PNEUMOCOCCAL VACCINE, POLYVALENT 23
     Indication: PRODUCT USED FOR UNKNOWN INDICATION
     Route: 065
     Dates: start: 20151029
  6. CELEBREX [Concomitant]
     Active Substance: CELECOXIB
  7. ACTEMRA [Suspect]
     Active Substance: TOCILIZUMAB
     Route: 042
     Dates: start: 20101112
  8. FOLIC ACID. [Concomitant]
     Active Substance: FOLIC ACID

REACTIONS (23)
  - Migraine [Recovered/Resolved]
  - Hypotension [Unknown]
  - Cellulitis [Recovered/Resolved]
  - Oedema peripheral [Recovered/Resolved]
  - Cholelithiasis [Recovering/Resolving]
  - Thyroid function test abnormal [Unknown]
  - Arthropod sting [Recovered/Resolved]
  - Arthropod sting [Not Recovered/Not Resolved]
  - Arthralgia [Recovering/Resolving]
  - Erythema [Unknown]
  - Fatigue [Unknown]
  - Fatigue [Recovered/Resolved]
  - Oedema peripheral [Recovering/Resolving]
  - Thyroid disorder [Unknown]
  - Rheumatoid arthritis [Unknown]
  - Infusion related reaction [Unknown]
  - Pain in extremity [Recovering/Resolving]
  - Fall [Unknown]
  - Pyrexia [Recovered/Resolved]
  - Pain in extremity [Recovered/Resolved]
  - Weight fluctuation [Not Recovered/Not Resolved]
  - Vomiting [Not Recovered/Not Resolved]
  - Arthralgia [Recovered/Resolved]

NARRATIVE: CASE EVENT DATE: 20120620
